FAERS Safety Report 7000809-4 (Version None)
Quarter: 2010Q3

REPORT INFORMATION
  Report Type: 
  Country: None (occurrence: None)
  Receive Date: 20100920
  Receipt Date: 20100324
  Transmission Date: 20110219
  Serious: No
  Sender: FDA-Public Use
  Company Number: US-ASTRAZENECA-2010SE13002

PATIENT
  Age: 36 Year
  Sex: Female
  Weight: 74.8 kg

DRUGS (14)
  1. SEROQUEL XR [Suspect]
     Indication: MANIA
     Route: 048
  2. SEROQUEL XR [Suspect]
     Indication: BIPOLAR DISORDER
     Route: 048
  3. SEROQUEL XR [Suspect]
     Route: 048
     Dates: start: 20100320, end: 20100322
  4. SEROQUEL XR [Suspect]
     Route: 048
     Dates: start: 20100320, end: 20100322
  5. LITHIUM [Concomitant]
  6. LAMICTAL [Concomitant]
  7. TOPAMAX [Concomitant]
  8. KLONOPIN [Concomitant]
  9. TRAZODONE HCL [Concomitant]
  10. MOTRIN [Concomitant]
     Dosage: AS REQUIRED
  11. AMBIEN [Concomitant]
  12. GENERIC BLOOD PRESSURE MEDICATION [Concomitant]
     Indication: BLOOD PRESSURE
  13. BELLADONNA [Concomitant]
     Indication: ABDOMINAL DISCOMFORT
     Dosage: AS REQUIRED
  14. ATARAL [Concomitant]

REACTIONS (4)
  - ABDOMINAL DISCOMFORT [None]
  - AGITATION [None]
  - INSOMNIA [None]
  - MANIA [None]
